FAERS Safety Report 21839730 (Version 3)
Quarter: 2023Q1

REPORT INFORMATION
  Report Type: Report from Study
  Country: US (occurrence: US)
  Receive Date: 20230109
  Receipt Date: 20230127
  Transmission Date: 20230418
  Serious: Yes (Death, Other)
  Sender: FDA-Public Use
  Company Number: US-ABBVIE-4263163

PATIENT
  Age: 78 Year
  Sex: Male

DRUGS (2)
  1. IMBRUVICA [Suspect]
     Active Substance: IBRUTINIB
     Indication: Chronic lymphocytic leukaemia
     Dosage: FIRST ADMINISTRATION DATE WAS 2014
     Route: 048
  2. IMBRUVICA [Suspect]
     Active Substance: IBRUTINIB
     Indication: Chronic lymphocytic leukaemia
     Route: 048
     Dates: start: 20150101

REACTIONS (3)
  - Hospice care [Unknown]
  - Parkinson^s disease [Unknown]
  - Death [Fatal]

NARRATIVE: CASE EVENT DATE: 20200107
